FAERS Safety Report 8221689-5 (Version None)
Quarter: 2012Q1

REPORT INFORMATION
  Report Type: 
  Country: None (occurrence: None)
  Receive Date: 20120320
  Receipt Date: 20120319
  Transmission Date: 20120608
  Serious: No
  Sender: FDA-Public Use
  Company Number: US-B.I. PHARMACEUTICALS,INC./RIDGEFIELD-2012-BP-00739BP

PATIENT
  Sex: Female

DRUGS (5)
  1. BYETTA [Concomitant]
  2. PRAVASTATIN [Concomitant]
  3. ACCUPRIL [Concomitant]
  4. TRADJENTA [Suspect]
     Indication: DIABETES MELLITUS
     Dosage: 5 MG
     Dates: start: 20111228, end: 20120103
  5. IMITREX [Concomitant]

REACTIONS (1)
  - DRUG INEFFECTIVE [None]
